FAERS Safety Report 25484645 (Version 1)
Quarter: 2025Q2

REPORT INFORMATION
  Report Type: Spontaneous
  Country: US (occurrence: None)
  Receive Date: 20250627
  Receipt Date: 20250627
  Transmission Date: 20250717
  Serious: No
  Sender: FDA-CTU
  Company Number: None

PATIENT

DRUGS (1)
  1. COPAXONE [Suspect]
     Active Substance: GLATIRAMER ACETATE
     Indication: Myasthenia gravis
     Dates: start: 20250527

REACTIONS (3)
  - Magnetic resonance imaging abnormal [None]
  - Condition aggravated [None]
  - Myasthenia gravis [None]
